FAERS Safety Report 15076465 (Version 1)
Quarter: 2018Q2

REPORT INFORMATION
  Report Type: Spontaneous
  Country: RU (occurrence: RU)
  Receive Date: 20180627
  Receipt Date: 20180627
  Transmission Date: 20180711
  Serious: Yes (Hospitalization, Other)
  Sender: FDA-Public Use
  Company Number: RU-JNJFOC-20180632682

PATIENT
  Age: 37 Year
  Sex: Female

DRUGS (2)
  1. XARELTO [Suspect]
     Active Substance: RIVAROXABAN
     Indication: ANTICOAGULANT THERAPY
     Route: 048
  2. QLAIRA [Suspect]
     Active Substance: DIENOGEST\ESTRADIOL VALERATE
     Indication: MENORRHAGIA
     Route: 048
     Dates: start: 201802, end: 201802

REACTIONS (3)
  - Cerebral artery thrombosis [Unknown]
  - Arthralgia [Unknown]
  - Withdrawal bleed [Unknown]

NARRATIVE: CASE EVENT DATE: 201802
